FAERS Safety Report 4287132-6 (Version None)
Quarter: 2004Q1

REPORT INFORMATION
  Report Type: 
  Country: None (occurrence: None)
  Receive Date: 20040204
  Receipt Date: 20040122
  Transmission Date: 20041129
  Serious: Yes (Disabling)
  Sender: FDA-Public Use
  Company Number: 230056M03GBR

PATIENT
  Age: 43 Year
  Sex: Male

DRUGS (2)
  1. REBIF [Suspect]
     Indication: MULTIPLE SCLEROSIS
     Dosage: 44 MCG, 3 IN 1 WEEKS, SUBCUTANEOUS
     Route: 058
     Dates: start: 20030425, end: 20031010
  2. CITALOPRAM HYDROBROMIDE [Concomitant]

REACTIONS (10)
  - LEUKOPENIA [None]
  - LYMPHOPENIA [None]
  - NEUTROPENIA [None]
  - OCULAR DISCOMFORT [None]
  - OPTIC NEURITIS [None]
  - RETINAL EXUDATES [None]
  - RETINOPATHY [None]
  - SCOTOMA [None]
  - VISION BLURRED [None]
  - VISUAL FIELD DEFECT [None]
